FAERS Safety Report 17651428 (Version 1)
Quarter: 2020Q2

REPORT INFORMATION
  Report Type: Spontaneous
  Country: FR (occurrence: FR)
  Receive Date: 20200409
  Receipt Date: 20200409
  Transmission Date: 20200713
  Serious: Yes (Other)
  Sender: FDA-Public Use
  Company Number: FR-TEVA-2020-FR-1221070

PATIENT
  Age: 51 Year
  Sex: Male

DRUGS (15)
  1. TEGRETOL [Suspect]
     Active Substance: CARBAMAZEPINE
     Dosage: 400 MG
     Route: 048
     Dates: start: 20191227, end: 20191227
  2. GUTRON [Suspect]
     Active Substance: MIDODRINE
     Indication: PRODUCT ADMINISTRATION ERROR
     Dosage: 2.5 MG
     Route: 048
     Dates: start: 20191227, end: 20191227
  3. NOZINAN [Concomitant]
     Active Substance: LEVOMEPROMAZINE
     Indication: AUTISM SPECTRUM DISORDER
     Dosage: UNASYSED DRUG
     Route: 048
  4. SULFARLEM S [Concomitant]
     Active Substance: ANETHOLTRITHION
     Indication: PARKINSONISM
     Dosage: UNASYSED DRUG
     Route: 048
  5. ACIDE VALPROIQUE [Concomitant]
     Active Substance: VALPROIC ACID
     Indication: AUTISM SPECTRUM DISORDER
     Dosage: UNASYSED DRUG
     Route: 048
  6. LOXAPAC [Suspect]
     Active Substance: LOXAPINE
     Indication: PRODUCT ADMINISTRATION ERROR
     Dosage: 25 MG
     Route: 048
     Dates: start: 20191227, end: 20191227
  7. DIPIPERON [Concomitant]
     Active Substance: PIPAMPERONE
     Indication: AUTISM SPECTRUM DISORDER
     Dosage: UNASYSED DRUG
     Route: 048
     Dates: start: 20191127
  8. ROSUVASTATIN. [Suspect]
     Active Substance: ROSUVASTATIN
     Indication: PRODUCT ADMINISTRATION ERROR
     Dosage: 5 MG
     Route: 048
     Dates: start: 20191227, end: 20191227
  9. HALOPERIDOL. [Suspect]
     Active Substance: HALOPERIDOL
     Indication: PRODUCT ADMINISTRATION ERROR
     Dosage: 10 MG
     Route: 048
     Dates: start: 20191227, end: 20191227
  10. TRANXENE [Suspect]
     Active Substance: CLORAZEPATE DIPOTASSIUM
     Indication: PRODUCT ADMINISTRATION ERROR
     Dosage: 10 MG
     Route: 048
     Dates: start: 20191227, end: 20191227
  11. PHENERGAN [Suspect]
     Active Substance: PROMETHAZINE HYDROCHLORIDE
     Indication: PRODUCT ADMINISTRATION ERROR
     Dosage: 50 MG
     Route: 048
     Dates: start: 20191227, end: 20191227
  12. LEPTICUR [Concomitant]
     Active Substance: TROPATEPINE HYDROCHLORIDE
     Indication: PRODUCT USED FOR UNKNOWN INDICATION
     Dosage: UNASYSED DRUG
     Route: 048
  13. PRAVASTATINE SODIQUE [Concomitant]
     Active Substance: PRAVASTATIN SODIUM
     Indication: PRODUCT USED FOR UNKNOWN INDICATION
     Dosage: UNASYSED DRUG
     Route: 048
  14. RISPERIDONE. [Concomitant]
     Active Substance: RISPERIDONE
     Indication: AUTISM SPECTRUM DISORDER
     Dosage: UNASYSED DRUG
     Route: 048
  15. DESLORATADINE. [Suspect]
     Active Substance: DESLORATADINE
     Indication: PRODUCT ADMINISTRATION ERROR
     Route: 048
     Dates: start: 20191227, end: 20191227

REACTIONS (7)
  - Product administration error [Recovered/Resolved]
  - Rash maculo-papular [Recovered/Resolved]
  - Dermatitis bullous [Recovered/Resolved]
  - Pruritus [Recovered/Resolved]
  - Toxic skin eruption [Recovered/Resolved]
  - Wrong patient received product [Recovered/Resolved]
  - Wrong product administered [Recovered/Resolved]

NARRATIVE: CASE EVENT DATE: 20191227
